FAERS Safety Report 5143464-0 (Version None)
Quarter: 2006Q4

REPORT INFORMATION
  Report Type: 
  Country: None (occurrence: None)
  Receive Date: 20061103
  Receipt Date: 20061020
  Transmission Date: 20070319
  Serious: Yes (Other)
  Sender: FDA-Public Use
  Company Number: US-ELI_LILLY_AND_COMPANY-US200610003850

PATIENT
  Age: 58 Year
  Sex: Female

DRUGS (3)
  1. PROZAC [Suspect]
     Indication: DEPRESSION
     Dosage: 20 MG, DAILY (1/D)
     Route: 048
     Dates: start: 19960101
  2. EVISTA [Suspect]
     Indication: OSTEOPOROSIS
  3. ACTONEL                                 /USA/ [Concomitant]

REACTIONS (6)
  - BLOOD AMYLASE INCREASED [None]
  - CARBOHYDRATE ANTIGEN 19-9 INCREASED [None]
  - LIVER DISORDER [None]
  - MUSCLE SPASMS [None]
  - NAUSEA [None]
  - PAIN [None]
